FAERS Safety Report 25777191 (Version 1)
Quarter: 2025Q3

REPORT INFORMATION
  Report Type: Spontaneous
  Country: US (occurrence: US)
  Receive Date: 20250909
  Receipt Date: 20250909
  Transmission Date: 20251020
  Serious: No
  Sender: Kenvue
  Company Number: US-KENVUE-20250807875

PATIENT
  Age: 75 Year
  Sex: Female

DRUGS (1)
  1. ZYRTEC [Suspect]
     Active Substance: CETIRIZINE HYDROCHLORIDE
     Indication: Rhinitis
     Dosage: 1 DOSAGE FORM, ONCE A DAY LAST NIGHT
     Route: 065
     Dates: start: 20250813, end: 20250814

REACTIONS (3)
  - Somnolence [Recovering/Resolving]
  - Dizziness [Recovering/Resolving]
  - Off label use [Unknown]

NARRATIVE: CASE EVENT DATE: 20250813
